FAERS Safety Report 18020012 (Version 3)
Quarter: 2020Q3

REPORT INFORMATION
  Report Type: Spontaneous
  Country: US (occurrence: US)
  Receive Date: 20200714
  Receipt Date: 20200828
  Transmission Date: 20201103
  Serious: Yes (Other)
  Sender: FDA-Public Use
  Company Number: US-BAYER-2020-141275

PATIENT
  Age: 22 Year
  Sex: Female

DRUGS (1)
  1. KYLEENA [Suspect]
     Active Substance: LEVONORGESTREL
     Indication: CONTRACEPTION
     Dosage: 17.5 ?G PER DAY CONTINUOUSLY
     Route: 015
     Dates: start: 20200430, end: 20200515

REACTIONS (4)
  - Device expulsion [Recovered/Resolved]
  - Abdominal pain lower [None]
  - Vaginal haemorrhage [None]
  - Uterine haemorrhage [None]

NARRATIVE: CASE EVENT DATE: 20200515
